FAERS Safety Report 4615044-4 (Version None)
Quarter: 2005Q1

REPORT INFORMATION
  Report Type: 
  Country: None (occurrence: None)
  Receive Date: 20050322
  Receipt Date: 20050307
  Transmission Date: 20050727
  Serious: Yes (Hospitalization)
  Sender: FDA-Public Use
  Company Number: US-GLAXOSMITHKLINE-A0548569A

PATIENT
  Age: 37 Year
  Sex: Female
  Weight: 51 kg

DRUGS (13)
  1. TAGAMET HB 200 [Suspect]
     Route: 048
  2. GAVISCON [Suspect]
     Route: 048
  3. ZANTAC [Concomitant]
     Route: 048
  4. REGLAN [Concomitant]
     Route: 048
  5. IMITREX [Concomitant]
     Indication: MIGRAINE
  6. OXYCONTIN [Concomitant]
     Indication: PAIN
     Route: 048
  7. RELAFEN [Concomitant]
     Indication: ARTHRITIS
     Route: 048
  8. TEGRETOL [Concomitant]
     Route: 048
  9. PROZAC [Concomitant]
     Indication: HEAD INJURY
     Route: 048
  10. XANAX [Concomitant]
     Indication: HEAD INJURY
     Route: 048
  11. PHENERGAN [Concomitant]
     Indication: NAUSEA
     Route: 048
  12. ZOFRAN [Concomitant]
     Indication: NAUSEA
     Route: 048
  13. MARINOL [Concomitant]
     Indication: NAUSEA
     Route: 048

REACTIONS (3)
  - DRUG INEFFECTIVE [None]
  - GASTROOESOPHAGEAL REFLUX DISEASE [None]
  - URINARY RETENTION [None]
